FAERS Safety Report 8041575-3 (Version None)
Quarter: 2012Q1

REPORT INFORMATION
  Report Type: 
  Country: None (occurrence: None)
  Receive Date: 20120112
  Receipt Date: 20120111
  Transmission Date: 20120608
  Serious: Yes (Disabling, Other)
  Sender: FDA-Public Use
  Company Number: US-JNJFOC-20120103830

PATIENT
  Sex: Female

DRUGS (1)
  1. LEVAQUIN [Suspect]
     Indication: PRODUCT USED FOR UNKNOWN INDICATION
     Route: 048

REACTIONS (6)
  - IMPAIRED WORK ABILITY [None]
  - ABASIA [None]
  - BRAIN INJURY [None]
  - MULTIPLE SCLEROSIS [None]
  - DISABILITY [None]
  - STEVENS-JOHNSON SYNDROME [None]
